FAERS Safety Report 6472957-9 (Version None)
Quarter: 2009Q4

REPORT INFORMATION
  Report Type: 
  Country: None (occurrence: None)
  Receive Date: 20091204
  Receipt Date: 20091123
  Transmission Date: 20100525
  Serious: Yes (Hospitalization)
  Sender: FDA-Public Use
  Company Number: GB-RANBAXY-2009RR-29400

PATIENT
  Age: 92 Year
  Sex: Male

DRUGS (5)
  1. LISINOPRIL [Suspect]
     Indication: CARDIAC DISORDER
     Dosage: 2.5 MG, QD
     Route: 048
     Dates: end: 20091103
  2. NICORANDIL [Suspect]
     Indication: CARDIAC DISORDER
     Dosage: 20 MG, BID
     Dates: end: 20091103
  3. CALCICHEW D3 [Concomitant]
     Dosage: 1 DF, BID
     Route: 048
  4. LATANOPROST [Concomitant]
     Dosage: 1 DF, QD
     Route: 047
  5. PRAVASTATIN [Concomitant]
     Dosage: 40 MG, UNK
     Route: 048

REACTIONS (2)
  - FALL [None]
  - HYPOTENSION [None]
